FAERS Safety Report 6781337-8 (Version None)
Quarter: 2010Q2

REPORT INFORMATION
  Report Type: 
  Country: None (occurrence: None)
  Receive Date: 20100621
  Receipt Date: 20100616
  Transmission Date: 20101027
  Serious: Yes (Death)
  Sender: FDA-Public Use
  Company Number: PHHY2010CA39454

PATIENT

DRUGS (1)
  1. ALISKIREN ALI+ [Suspect]

REACTIONS (1)
  - HEPATIC NEOPLASM MALIGNANT [None]
